FAERS Safety Report 15308379 (Version 2)
Quarter: 2018Q3

REPORT INFORMATION
  Report Type: Spontaneous
  Country: GB (occurrence: GB)
  Receive Date: 20180822
  Receipt Date: 20180907
  Transmission Date: 20181010
  Serious: Yes (Death)
  Sender: FDA-Public Use
  Company Number: GB-TEVA-2018-GB-945343

PATIENT
  Age: 32 Year
  Sex: Female
  Weight: 65 kg

DRUGS (9)
  1. OLANZAPINE. [Suspect]
     Active Substance: OLANZAPINE
     Indication: SUBSTANCE-INDUCED PSYCHOTIC DISORDER
     Dosage: 12.5 MILLIGRAM DAILY;
     Route: 048
     Dates: end: 20171211
  2. CODEINE [Concomitant]
     Active Substance: CODEINE
     Dosage: 90 MILLIGRAM DAILY;
     Route: 065
  3. AZATHIOPRINE. [Concomitant]
     Active Substance: AZATHIOPRINE
     Dosage: 175 MILLIGRAM DAILY;
     Route: 065
  4. BALSALAZIDE [Concomitant]
     Active Substance: BALSALAZIDE
     Dosage: 6.75 MILLIGRAM DAILY;
     Route: 065
  5. PARACETAMOL [Concomitant]
     Active Substance: ACETAMINOPHEN
     Dosage: 4 GRAM DAILY;
     Route: 065
  6. LACTULOSE. [Concomitant]
     Active Substance: LACTULOSE
     Route: 065
  7. PAROXETINE. [Concomitant]
     Active Substance: PAROXETINE
     Dosage: 40 MILLIGRAM DAILY;
     Route: 065
  8. OMEPRAZOLE. [Concomitant]
     Active Substance: OMEPRAZOLE
     Dosage: 40 MILLIGRAM DAILY;
  9. MORPHINE [Concomitant]
     Active Substance: MORPHINE
     Dosage: 20 MILLIGRAM DAILY;
     Route: 065

REACTIONS (1)
  - Pulmonary embolism [Fatal]

NARRATIVE: CASE EVENT DATE: 20171201
